FAERS Safety Report 4744104-2 (Version None)
Quarter: 2005Q3

REPORT INFORMATION
  Report Type: 
  Country: None (occurrence: None)
  Receive Date: 20050812
  Receipt Date: 20050630
  Transmission Date: 20060218
  Serious: Yes (Other)
  Sender: FDA-Public Use
  Company Number: FR-JNJFOC-20050700343

PATIENT
  Sex: Female
  Weight: 44 kg

DRUGS (14)
  1. SPORANOX [Suspect]
     Route: 048
  2. SPORANOX [Suspect]
     Indication: ASPERGILLOSIS
     Route: 048
  3. CREON [Concomitant]
     Route: 048
  4. COLISTIN SULFATE [Concomitant]
     Route: 048
  5. DELURSAN [Concomitant]
     Route: 048
  6. OMEPRAZOLE [Concomitant]
     Route: 048
  7. SYMBICORT [Concomitant]
     Route: 055
  8. SYMBICORT [Concomitant]
     Route: 055
  9. TOCO [Concomitant]
     Route: 048
  10. UVESTEROL [Concomitant]
     Route: 048
  11. UVESTEROL [Concomitant]
     Route: 048
  12. UVESTEROL [Concomitant]
     Route: 048
  13. UVESTEROL [Concomitant]
     Route: 048
  14. PULMOZYME [Concomitant]
     Route: 055

REACTIONS (10)
  - ABDOMINAL PAIN [None]
  - APHASIA [None]
  - CYANOSIS [None]
  - FATIGUE [None]
  - FLUSHING [None]
  - MALAISE [None]
  - PALLOR [None]
  - PYREXIA [None]
  - VERTIGO [None]
  - VOMITING [None]
